FAERS Safety Report 24214227 (Version 1)
Quarter: 2024Q3

REPORT INFORMATION
  Report Type: Spontaneous
  Country: CN (occurrence: CN)
  Receive Date: 20240815
  Receipt Date: 20240815
  Transmission Date: 20241017
  Serious: Yes (Hospitalization)
  Sender: AMERICAN REGENT
  Company Number: CN-AMERICAN REGENT INC-2024003081

PATIENT
  Age: 44 Year
  Sex: Female
  Weight: 45 kg

DRUGS (1)
  1. VENOFER [Suspect]
     Active Substance: IRON SUCROSE
     Indication: Crohn^s disease
     Dosage: 100 ML (5 ML) DILUTED IN 0.9% 100 ML ONCE A DAY IN SODIUM CHLORIDE INJECTION (VEHICLE SOLUTION) (5 M
     Dates: start: 20240723, end: 20240723

REACTIONS (4)
  - Rash [Recovering/Resolving]
  - Palpitations [Recovering/Resolving]
  - Pruritus [Recovering/Resolving]
  - Off label use [Unknown]

NARRATIVE: CASE EVENT DATE: 20240723
